FAERS Safety Report 15076646 (Version 2)
Quarter: 2018Q3

REPORT INFORMATION
  Report Type: Spontaneous
  Country: IE (occurrence: IE)
  Receive Date: 20180627
  Receipt Date: 20180712
  Transmission Date: 20181010
  Serious: Yes (Hospitalization)
  Sender: FDA-Public Use
  Company Number: IE-BAYER-2018-121337

PATIENT
  Age: 15 Year
  Sex: Female
  Weight: 53.8 kg

DRUGS (3)
  1. MONOTRIM [Suspect]
     Active Substance: TRIMETHOPRIM
     Indication: ACNE
     Route: 048
     Dates: start: 20180528, end: 20180611
  2. MONOTRIM [Suspect]
     Active Substance: TRIMETHOPRIM
     Indication: ACNE
     Dosage: 300 MG, QD
     Route: 048
     Dates: start: 20180528, end: 20180611
  3. YASMIN [Suspect]
     Active Substance: DROSPIRENONE\ETHINYL ESTRADIOL
     Indication: ACNE
     Dosage: 1 DF, QD
     Route: 048
     Dates: start: 20180605, end: 20180611

REACTIONS (8)
  - Headache [Recovered/Resolved]
  - Rash macular [Recovered/Resolved]
  - Lethargy [Recovered/Resolved]
  - Rash erythematous [Recovered/Resolved]
  - Vomiting [Recovered/Resolved]
  - Pyrexia [Recovered/Resolved]
  - Drug eruption [Recovered/Resolved]
  - Pruritus [Recovered/Resolved]

NARRATIVE: CASE EVENT DATE: 20180608
